FAERS Safety Report 21719129 (Version 1)
Quarter: 2022Q4

REPORT INFORMATION
  Report Type: Spontaneous
  Country: IT (occurrence: IT)
  Receive Date: 20221213
  Receipt Date: 20221213
  Transmission Date: 20230112
  Serious: Yes (Hospitalization)
  Sender: FDA-Public Use
  Company Number: None

PATIENT
  Age: 71 Year
  Sex: Male
  Weight: 60 kg

DRUGS (3)
  1. KEYTRUDA [Suspect]
     Active Substance: PEMBROLIZUMAB
     Indication: Metastases to central nervous system
     Dosage: EVERY 3 WEEKS INTRAVENOUSLY
     Route: 042
     Dates: start: 20220817, end: 20221018
  2. METFORMIN HYDROCHLORIDE [Concomitant]
     Active Substance: METFORMIN HYDROCHLORIDE
     Indication: Type 2 diabetes mellitus
     Dosage: 850 MG/DAY
     Route: 048
     Dates: start: 20170615
  3. IODAMIDE [Concomitant]
     Active Substance: IODAMIDE
     Indication: Cancer staging
     Dosage: QUANTITY REQUIRED FOR RESTAGING CT
     Route: 042
     Dates: start: 20221028, end: 20221028

REACTIONS (2)
  - Nephritis [Recovering/Resolving]
  - Acute kidney injury [Recovering/Resolving]

NARRATIVE: CASE EVENT DATE: 20221107
